FAERS Safety Report 7953006-X (Version None)
Quarter: 2011Q4

REPORT INFORMATION
  Report Type: 
  Country: None (occurrence: None)
  Receive Date: 20111201
  Receipt Date: 20111122
  Transmission Date: 20120403
  Serious: Yes (Other)
  Sender: FDA-Public Use
  Company Number: CN-ASTRAZENECA-2011SE71129

PATIENT
  Sex: Female

DRUGS (6)
  1. PROPOFOL [Suspect]
     Indication: ANAESTHESIA
     Dosage: 6-10 MG/(KG.H)
     Route: 042
  2. KETAMINE HCL [Suspect]
     Indication: ANAESTHESIA
     Route: 042
  3. PHENOBARBITAL TAB [Suspect]
     Route: 030
  4. FENTANYL [Suspect]
     Indication: ANAESTHESIA
     Route: 042
  5. PROPOFOL [Suspect]
     Dosage: 1-1.5 MG/(KG.H)
     Route: 042
  6. ATROPINE [Suspect]
     Route: 030

REACTIONS (5)
  - BLOOD PRESSURE INCREASED [None]
  - HEART RATE INCREASED [None]
  - MENTAL STATUS CHANGES [None]
  - PROCEDURAL NAUSEA [None]
  - RESPIRATORY DEPRESSION [None]
